FAERS Safety Report 6812678-3 (Version None)
Quarter: 2010Q3

REPORT INFORMATION
  Report Type: 
  Country: None (occurrence: None)
  Receive Date: 20100701
  Receipt Date: 20100624
  Transmission Date: 20110219
  Serious: Yes (Death)
  Sender: FDA-Public Use
  Company Number: CO-ROCHE-711308

PATIENT
  Sex: Female

DRUGS (3)
  1. XELODA [Suspect]
     Indication: BREAST CANCER
     Route: 048
     Dates: start: 20091116, end: 20100517
  2. ACETAMINOPHEN [Concomitant]
     Indication: PAIN
     Route: 048
  3. METOCLOPRAMIDE [Concomitant]
     Route: 048

REACTIONS (1)
  - DISEASE PROGRESSION [None]
